FAERS Safety Report 6816349-9 (Version None)
Quarter: 2010Q3

REPORT INFORMATION
  Report Type: 
  Country: None (occurrence: None)
  Receive Date: 20100705
  Receipt Date: 20100621
  Transmission Date: 20110219
  Serious: Yes (Hospitalization, Other)
  Sender: FDA-Public Use
  Company Number: PHHY2010US37606

PATIENT
  Sex: Female
  Weight: 90.703 kg

DRUGS (10)
  1. EXELON [Suspect]
     Indication: PARKINSONISM
     Dosage: 1 DF, QD
     Route: 062
     Dates: start: 20100423, end: 20100427
  2. ASPIRIN [Concomitant]
     Dosage: UNK,UNK
  3. CALCIFEROL [Concomitant]
     Dosage: UNK,UNK
  4. NEURONTIN [Concomitant]
     Indication: POLYNEUROPATHY
     Dosage: 300 MG, BID
  5. LAMICTAL [Concomitant]
     Indication: CONVULSION
     Dosage: 200 MG, BID
  6. PHENOBARBITAL [Concomitant]
     Indication: CONVULSION
     Dosage: 15 MG, QHS
  7. COUMADIN [Concomitant]
     Indication: PULMONARY EMBOLISM
     Dosage: UNK,UNK
  8. VITAMIN B-12 [Concomitant]
     Dosage: UNK,UNK
  9. GLUCOSAMINE [Concomitant]
     Dosage: UNK,UNK
  10. TYLENOL [Concomitant]
     Dosage: UNK,EXTRA STRENGTH AS NEEDED

REACTIONS (10)
  - DYSARTHRIA [None]
  - DYSKINESIA [None]
  - DYSPHEMIA [None]
  - DYSTONIA [None]
  - EXTRAPYRAMIDAL DISORDER [None]
  - MUSCLE SPASMS [None]
  - MUSCLE TWITCHING [None]
  - OEDEMA PERIPHERAL [None]
  - POSITIVE ROMBERGISM [None]
  - TREMOR [None]
